FAERS Safety Report 21782197 (Version 1)
Quarter: 2022Q4

REPORT INFORMATION
  Report Type: Report from Study
  Country: EG (occurrence: EG)
  Receive Date: 20221227
  Receipt Date: 20221227
  Transmission Date: 20230113
  Serious: Yes (Other)
  Sender: FDA-Public Use
  Company Number: EG-002147023-NVSC2022EG264803

PATIENT
  Age: 31 Year
  Sex: Female

DRUGS (4)
  1. HYRIMOZ [Suspect]
     Active Substance: ADALIMUMAB-ADAZ
     Indication: Rheumatoid arthritis
     Dosage: 40 MG, Q2W
     Route: 058
     Dates: start: 20220613, end: 202208
  2. METHOTREXATE [Concomitant]
     Active Substance: METHOTREXATE
     Indication: Rheumatoid arthritis
     Dosage: 4 DOSAGE FORM
     Route: 065
     Dates: start: 20220301
  3. SOLUPRED [Concomitant]
     Indication: Rheumatoid arthritis
     Dosage: 1.5 DOSAGE FORM IN THE MORNING (STARTED FROM 12 OR 13 YEARS AGO)
     Route: 065
  4. CALCID [Concomitant]
     Indication: Supplementation therapy
     Dosage: UNK, BID (STARTED 14 YEARS AGO)
     Route: 065

REACTIONS (7)
  - Rheumatoid arthritis [Recovered/Resolved]
  - Joint swelling [Recovered/Resolved]
  - Concomitant disease aggravated [Recovered/Resolved]
  - Pain [Recovered/Resolved]
  - Gait inability [Recovered/Resolved]
  - Peripheral swelling [Unknown]
  - Drug ineffective [Recovered/Resolved]

NARRATIVE: CASE EVENT DATE: 20220901
